FAERS Safety Report 4522219-1 (Version None)
Quarter: 2004Q4

REPORT INFORMATION
  Report Type: 
  Country: None (occurrence: None)
  Receive Date: 20041207
  Receipt Date: 20041118
  Transmission Date: 20050328
  Serious: Yes (Hospitalization)
  Sender: FDA-Public Use
  Company Number: EWC041141525

PATIENT
  Age: 70 Year
  Sex: Female

DRUGS (3)
  1. FORSTEO(TERPARATIDE) [Suspect]
     Dosage: 20 UG/1 DAY
     Dates: end: 20040801
  2. KALCIPOS-D [Concomitant]
  3. WARFARIN SODIUM [Concomitant]

REACTIONS (1)
  - CHEST PAIN [None]
